FAERS Safety Report 6045351-2 (Version None)
Quarter: 2009Q1

REPORT INFORMATION
  Report Type: 
  Country: None (occurrence: None)
  Receive Date: 20090116
  Receipt Date: 20090116
  Transmission Date: 20090719
  Serious: Yes (Hospitalization)
  Sender: FDA-Public Use
  Company Number: None

PATIENT
  Sex: Male

DRUGS (1)
  1. CETUXIMAB [Suspect]
     Indication: TONSIL CANCER
     Dosage: 400 MG/MW, LOADING, IV
     Route: 042
     Dates: start: 20090107

REACTIONS (4)
  - HYPERCALCAEMIA OF MALIGNANCY [None]
  - HYPOXIA [None]
  - MENTAL STATUS CHANGES [None]
  - URTICARIA [None]
